FAERS Safety Report 9517211 (Version 1)
Quarter: 2013Q3

REPORT INFORMATION
  Report Type: Spontaneous
  Country: US (occurrence: US)
  Receive Date: 20130911
  Receipt Date: 20130911
  Transmission Date: 20140515
  Serious: No
  Sender: FDA-Public Use
  Company Number: US-ASTRAZENECA-2013SE53599

PATIENT
  Age: 72 Year
  Sex: Female
  Weight: 82.1 kg

DRUGS (5)
  1. SYMBICORT [Suspect]
     Indication: CHRONIC OBSTRUCTIVE PULMONARY DISEASE
     Dosage: 160/4.5 TWO INHALATIONS TWICE DAILY
     Route: 055
  2. PROVENTIL HFA [Concomitant]
  3. SPIRIVA [Concomitant]
  4. ALBUTEROL IPRATROPRIUM [Concomitant]
  5. OXYGEN [Concomitant]
     Dosage: 2.5 L OF OXYGEN CONTINUOUS

REACTIONS (3)
  - Fear of death [Unknown]
  - Fear [Unknown]
  - Dyspnoea [Unknown]
